FAERS Safety Report 10093853 (Version 1)
Quarter: 2014Q2

REPORT INFORMATION
  Report Type: Spontaneous
  Country: US (occurrence: US)
  Receive Date: 20140421
  Receipt Date: 20140421
  Transmission Date: 20141212
  Serious: No
  Sender: FDA-Public Use
  Company Number: US-SANOFI-AVENTIS-2013SA084565

PATIENT
  Age: 16 Year
  Sex: Female

DRUGS (5)
  1. ALLEGRA [Suspect]
     Indication: HYPERSENSITIVITY
     Route: 048
     Dates: start: 20130819
  2. ALLEGRA [Suspect]
     Indication: COUGH
     Route: 048
     Dates: start: 20130819
  3. ALLEGRA [Suspect]
     Indication: OROPHARYNGEAL PAIN
     Route: 048
     Dates: start: 20130819
  4. IMMUNE SERA [Concomitant]
     Indication: HYPERSENSITIVITY
  5. NYQUIL [Concomitant]

REACTIONS (2)
  - Somnolence [Unknown]
  - Extra dose administered [Unknown]
